FAERS Safety Report 25089560 (Version 1)
Quarter: 2025Q1

REPORT INFORMATION
  Report Type: Spontaneous
  Country: US (occurrence: US)
  Receive Date: 20250318
  Receipt Date: 20250318
  Transmission Date: 20250409
  Serious: No
  Sender: BAYER HEALTHCARE PHARMACEUTICALS INC.
  Company Number: US-BAYER-2025A033610

PATIENT
  Age: 63 Year
  Sex: Male

DRUGS (3)
  1. ADEMPAS [Suspect]
     Active Substance: RIOCIGUAT
  2. ADEMPAS [Suspect]
     Active Substance: RIOCIGUAT
  3. ADEMPAS [Suspect]
     Active Substance: RIOCIGUAT
     Dates: start: 20250310

REACTIONS (3)
  - Muscle spasms [None]
  - Anaemia [None]
  - Pain [None]

NARRATIVE: CASE EVENT DATE: 20250310
